FAERS Safety Report 23905804 (Version 1)
Quarter: 2024Q2

REPORT INFORMATION
  Report Type: Spontaneous
  Country: US (occurrence: US)
  Receive Date: 20240527
  Receipt Date: 20240527
  Transmission Date: 20240716
  Serious: No
  Sender: FDA-Public Use
  Company Number: US-PFIZER INC-202400175452

PATIENT
  Age: 43 Year
  Sex: Male

DRUGS (1)
  1. TESTOSTERONE CYPIONATE [Suspect]
     Active Substance: TESTOSTERONE CYPIONATE
     Dosage: 30 MG UNDER THE SKIN DAILY

REACTIONS (3)
  - Hair disorder [Unknown]
  - Alopecia [Unknown]
  - Hair growth abnormal [Unknown]
